FAERS Safety Report 23914144 (Version 2)
Quarter: 2024Q2

REPORT INFORMATION
  Report Type: Spontaneous
  Country: FR (occurrence: FR)
  Receive Date: 20240529
  Receipt Date: 20240613
  Transmission Date: 20240715
  Serious: Yes (Hospitalization)
  Sender: FDA-Public Use
  Company Number: None

PATIENT
  Age: 77 Year
  Sex: Male
  Weight: 66 kg

DRUGS (2)
  1. ATORVASTATIN [Suspect]
     Active Substance: ATORVASTATIN
     Indication: Cardiac failure
     Dosage: 80 MILLIGRAM, QD
     Route: 048
     Dates: start: 20240424, end: 20240506
  2. URSODIOL [Suspect]
     Active Substance: URSODIOL
     Indication: Cholangitis chronic
     Dosage: 250 MILLIGRAM, QD
     Route: 048
     Dates: start: 20240424, end: 20240506

REACTIONS (3)
  - Liver disorder [Not Recovered/Not Resolved]
  - Hepatic cytolysis [Recovered/Resolved]
  - Jaundice cholestatic [Not Recovered/Not Resolved]

NARRATIVE: CASE EVENT DATE: 20240506
